FAERS Safety Report 5789789-7 (Version None)
Quarter: 2008Q2

REPORT INFORMATION
  Report Type: 
  Country: None (occurrence: None)
  Receive Date: 20080626
  Receipt Date: 20080213
  Transmission Date: 20081010
  Serious: No
  Sender: FDA-Public Use
  Company Number: A0709303A

PATIENT
  Age: 65 Year
  Sex: Female

DRUGS (4)
  1. ALLI [Suspect]
     Dates: start: 20080128, end: 20080208
  2. SYNTHROID [Concomitant]
  3. MULTI-VITAMIN [Concomitant]
  4. WATER PILL [Concomitant]

REACTIONS (1)
  - CONSTIPATION [None]
